FAERS Safety Report 20121466 (Version 1)
Quarter: 2021Q4

REPORT INFORMATION
  Report Type: Spontaneous
  Country: US (occurrence: US)
  Receive Date: 20211128
  Receipt Date: 20211128
  Transmission Date: 20220303
  Serious: No
  Sender: FDA-Public Use
  Company Number: US-SA-SAC20211118001832

PATIENT

DRUGS (1)
  1. NEXVIAZYME [Suspect]
     Active Substance: AVALGLUCOSIDASE ALFA-NGPT
     Indication: Glycogen storage disease type II
     Dosage: 20.9 MG/KG
     Route: 041
     Dates: start: 20211004

REACTIONS (3)
  - Middle insomnia [Unknown]
  - Headache [Unknown]
  - Nausea [Unknown]
